FAERS Safety Report 20354720 (Version 2)
Quarter: 2022Q1

REPORT INFORMATION
  Report Type: Spontaneous
  Country: AU (occurrence: AU)
  Receive Date: 20220120
  Receipt Date: 20220223
  Transmission Date: 20220423
  Serious: Yes (Other)
  Sender: FDA-Public Use
  Company Number: AU-ABBVIE-22K-008-4238424-00

PATIENT
  Sex: Female

DRUGS (1)
  1. HUMIRA [Suspect]
     Active Substance: ADALIMUMAB
     Indication: Scleritis
     Route: 058
     Dates: start: 2021

REACTIONS (7)
  - Suicidal ideation [Unknown]
  - Pharyngeal swelling [Unknown]
  - Depressed mood [Unknown]
  - Crying [Recovered/Resolved]
  - Migraine [Unknown]
  - Crying [Unknown]
  - Eye pain [Unknown]

NARRATIVE: CASE EVENT DATE: 20210101
